FAERS Safety Report 22605784 (Version 1)
Quarter: 2023Q2

REPORT INFORMATION
  Report Type: Spontaneous
  Country: US (occurrence: None)
  Receive Date: 20230614
  Receipt Date: 20230614
  Transmission Date: 20230722
  Serious: No
  Sender: FDA-Public Use
  Company Number: None

PATIENT
  Age: 65 Year
  Sex: Female

DRUGS (3)
  1. HUMIRA [Suspect]
     Active Substance: ADALIMUMAB
     Indication: Psoriatic arthropathy
     Dosage: FREQUENCY : EVERY OTHER WEEK;?
     Route: 058
     Dates: start: 202203
  2. GUANFACINE [Suspect]
     Active Substance: GUANFACINE
  3. PRAZOSIN [Suspect]
     Active Substance: PRAZOSIN

REACTIONS (2)
  - Bronchitis [None]
  - Chronic obstructive pulmonary disease [None]
